FAERS Safety Report 19364899 (Version 1)
Quarter: 2021Q2

REPORT INFORMATION
  Report Type: Spontaneous
  Country: NL (occurrence: DK)
  Receive Date: 20210602
  Receipt Date: 20210602
  Transmission Date: 20210717
  Serious: Yes (Hospitalization, Disabling)
  Sender: FDA-Public Use
  Company Number: DK-FRESENIUS KABI-FK202105408

PATIENT
  Age: 56 Year
  Sex: Female
  Weight: 96 kg

DRUGS (1)
  1. CYTARABINE (MANUFACTURER UNKNOWN) [Suspect]
     Active Substance: CYTARABINE
     Indication: ACUTE MYELOID LEUKAEMIA
     Dosage: DOSAGE: TREATMENT WAS PAUSED FROM 14/OCT/2019 TO 21/NOV/2019?STRENGTH: 100 MG/ML?PHARMACEUTICAL DOSE
     Route: 042
     Dates: start: 20191004, end: 20191129

REACTIONS (3)
  - Paraesthesia [Not Recovered/Not Resolved]
  - Muscular weakness [Unknown]
  - Neuropathy peripheral [Not Recovered/Not Resolved]

NARRATIVE: CASE EVENT DATE: 20191017
